FAERS Safety Report 18910614 (Version 1)
Quarter: 2021Q1

REPORT INFORMATION
  Report Type: Spontaneous
  Country: DE (occurrence: DE)
  Receive Date: 20210218
  Receipt Date: 20210218
  Transmission Date: 20210420
  Serious: Yes (Other)
  Sender: FDA-Public Use
  Company Number: NVSC2021DE035922

PATIENT
  Sex: Female

DRUGS (4)
  1. NEVANAC [Suspect]
     Active Substance: NEPAFENAC
     Dosage: UNK, BID
     Route: 065
  2. NEVANAC [Suspect]
     Active Substance: NEPAFENAC
     Dosage: 1 DRP, QD (STRENGTH: 1 MG/ ML)
     Route: 065
  3. HYLO?COMOD [Concomitant]
     Active Substance: HYALURONATE SODIUM
     Indication: EYE LUBRICATION THERAPY
     Dosage: UNK(AS REQUIRED)
     Route: 065
  4. NEVANAC [Suspect]
     Active Substance: NEPAFENAC
     Indication: PRODUCT USED FOR UNKNOWN INDICATION
     Dosage: UNK, QD (STRENGTH: 3 MG/ ML)
     Route: 065

REACTIONS (1)
  - Retinal oedema [Unknown]
